FAERS Safety Report 5989359-1 (Version None)
Quarter: 2008Q4

REPORT INFORMATION
  Report Type: 
  Country: None (occurrence: None)
  Receive Date: 20081210
  Receipt Date: 20081201
  Transmission Date: 20090506
  Serious: Yes (Other)
  Sender: FDA-Public Use
  Company Number: AU-SANOFI-SYNTHELABO-A01200815531

PATIENT
  Sex: Female

DRUGS (8)
  1. FISH OIL [Concomitant]
     Indication: DRUG USE FOR UNKNOWN INDICATION
     Dosage: UNK
     Route: 065
  2. LANSOPRAZOLE [Concomitant]
     Indication: GASTRIC ULCER
     Dosage: UNK
     Route: 065
  3. SERETIDE [Concomitant]
     Indication: ASTHMA
     Dosage: UNK
     Route: 065
  4. COVERSYL [Concomitant]
     Indication: HYPERTENSION
     Dosage: UNK
     Route: 065
  5. LIPITOR [Concomitant]
     Indication: BLOOD CHOLESTEROL INCREASED
     Dosage: UNK
     Route: 065
  6. ASPIRIN [Concomitant]
     Indication: DRUG USE FOR UNKNOWN INDICATION
     Dosage: UNK
     Route: 065
  7. ACETAMINOPHEN W/ CODEINE [Suspect]
     Indication: DRUG USE FOR UNKNOWN INDICATION
     Dosage: UNK
     Route: 065
  8. PLAVIX [Suspect]
     Indication: HYPERTENSION
     Route: 048
     Dates: start: 20050529

REACTIONS (3)
  - ABDOMINAL DISTENSION [None]
  - EPIDEMIC POLYARTHRITIS [None]
  - WEIGHT INCREASED [None]
